FAERS Safety Report 17579798 (Version 2)
Quarter: 2021Q3

REPORT INFORMATION
  Report Type: Spontaneous
  Country: CZ (occurrence: CZ)
  Receive Date: 20200325
  Receipt Date: 20210726
  Transmission Date: 20211014
  Serious: Yes (Hospitalization, Other)
  Sender: FDA-Public Use
  Company Number: CZ-JNJFOC-20200325291

PATIENT
  Age: 73 Year
  Sex: Male

DRUGS (6)
  1. RIVAROXABAN [Suspect]
     Active Substance: RIVAROXABAN
     Indication: ISCHAEMIC HEART DISEASE PROPHYLAXIS
     Dosage: 2.5 MG, BID (2.5MG NIGHT BEFORE BED)
     Route: 048
     Dates: start: 201911, end: 20200226
  2. RIVAROXABAN [Suspect]
     Active Substance: RIVAROXABAN
     Indication: MYOCARDIAL ISCHAEMIA
  3. ASPIRIN [ACETYLSALICYLIC ACID] [Suspect]
     Active Substance: ASPIRIN
     Indication: PRODUCT USED FOR UNKNOWN INDICATION
     Dosage: UNK
     Route: 065
     Dates: start: 201911
  4. RIVAROXABAN [Suspect]
     Active Substance: RIVAROXABAN
     Indication: AORTIC STENOSIS
  5. RIVAROXABAN [Suspect]
     Active Substance: RIVAROXABAN
     Indication: PERIPHERAL ARTERIAL OCCLUSIVE DISEASE
  6. RIVAROXABAN [Suspect]
     Active Substance: RIVAROXABAN
     Indication: DIABETES MELLITUS

REACTIONS (3)
  - Ischaemic stroke [Recovering/Resolving]
  - Hemiparesis [Recovering/Resolving]
  - VIIth nerve injury [Recovering/Resolving]

NARRATIVE: CASE EVENT DATE: 20200227
